FAERS Safety Report 14463307 (Version 1)
Quarter: 2018Q1

REPORT INFORMATION
  Report Type: Spontaneous
  Country: US (occurrence: US)
  Receive Date: 20180130
  Receipt Date: 20180130
  Transmission Date: 20180509
  Serious: No
  Sender: FDA-Public Use
  Company Number: US-TEIKOKU PHARMA USA-TPU2018-00023

PATIENT
  Sex: Female

DRUGS (1)
  1. LIDOCAINE PATCH [Suspect]
     Active Substance: LIDOCAINE
     Indication: MULTIPLE INJURIES
     Dates: start: 201711

REACTIONS (1)
  - Prescription drug used without a prescription [Unknown]
